FAERS Safety Report 19974595 (Version 1)
Quarter: 2021Q4

REPORT INFORMATION
  Report Type: Spontaneous
  Country: VE (occurrence: VE)
  Receive Date: 20211020
  Receipt Date: 20211020
  Transmission Date: 20220303
  Serious: Yes (Death, Hospitalization)
  Sender: FDA-Public Use
  Company Number: VE-NOVARTISPH-NVSC2020VE321096

PATIENT
  Sex: Male

DRUGS (2)
  1. GLIVEC [Suspect]
     Active Substance: IMATINIB MESYLATE
     Indication: Chronic myeloid leukaemia
     Dosage: 4 DF
     Route: 065
  2. GLIVEC [Suspect]
     Active Substance: IMATINIB MESYLATE
     Dosage: 400 MG (4 X 100MG TABLETS)
     Route: 065

REACTIONS (10)
  - Pulmonary thrombosis [Fatal]
  - Pneumonia bacterial [Fatal]
  - Respiratory arrest [Unknown]
  - Oxygen saturation decreased [Recovering/Resolving]
  - Fibrin D dimer [Unknown]
  - Diarrhoea [Unknown]
  - Cough [Unknown]
  - Pyrexia [Unknown]
  - Headache [Unknown]
  - Platelet count abnormal [Unknown]
